APPROVED DRUG PRODUCT: IOPAMIDOL
Active Ingredient: IOPAMIDOL
Strength: 51%
Dosage Form/Route: INJECTABLE;INJECTION
Application: A217134 | Product #002 | TE Code: AP
Applicant: HAINAN POLY PHARM CO LTD
Approved: Apr 9, 2024 | RLD: No | RS: No | Type: RX